FAERS Safety Report 5134147-1 (Version None)
Quarter: 2006Q4

REPORT INFORMATION
  Report Type: 
  Country: None (occurrence: None)
  Receive Date: 20061024
  Receipt Date: 20060718
  Transmission Date: 20070319
  Serious: Yes (Hospitalization)
  Sender: FDA-Public Use
  Company Number: JP-BRISTOL-MYERS SQUIBB COMPANY-13454566

PATIENT
  Age: 61 Year
  Sex: Male

DRUGS (6)
  1. EFAVIRENZ [Suspect]
     Indication: HIV INFECTION
     Route: 048
     Dates: start: 20050420, end: 20050629
  2. RETROVIR [Suspect]
     Indication: HIV INFECTION
     Route: 048
     Dates: start: 20050420, end: 20050629
  3. EPIVIR [Suspect]
     Indication: HIV INFECTION
     Route: 048
     Dates: start: 20050420, end: 20060202
  4. TENOFOVIR [Suspect]
     Indication: HIV INFECTION
     Route: 048
     Dates: start: 20050630, end: 20060202
  5. LEXIVA [Suspect]
     Indication: HIV INFECTION
     Route: 048
     Dates: start: 20050630
  6. EPZICOM [Concomitant]
     Dates: start: 20060203

REACTIONS (3)
  - LIVER DISORDER [None]
  - NEPHROPATHY [None]
  - TOXIC SKIN ERUPTION [None]
